FAERS Safety Report 7577621-0 (Version None)
Quarter: 2011Q2

REPORT INFORMATION
  Report Type: 
  Country: None (occurrence: None)
  Receive Date: 20110628
  Receipt Date: 20110624
  Transmission Date: 20111010
  Serious: Yes (Hospitalization)
  Sender: FDA-Public Use
  Company Number: JP-ABBOTT-11P-087-0727514-00

PATIENT
  Sex: Male
  Weight: 60.5 kg

DRUGS (17)
  1. LANSOPRAZOLE [Concomitant]
     Indication: CROHN'S DISEASE
     Dosage: 30 MG DAILY
     Route: 048
  2. KILLED ESCHERICHIA COLI/HYDROCORTISONE [Concomitant]
     Indication: CROHN'S DISEASE
     Route: 061
  3. TOKISHIGYAKUKAGOTO (HERBAL MEDICINE) [Concomitant]
     Indication: PRODUCT USED FOR UNKNOWN INDICATION
     Route: 048
  4. HUMIRA [Suspect]
     Dates: start: 20101129
  5. MOSAPRIDE CITRATE HYDRATE [Concomitant]
     Indication: CROHN'S DISEASE
     Dosage: 15 MG DAILY
     Route: 048
  6. SHAKUYAKUKANZOUTOU [Concomitant]
     Indication: PRODUCT USED FOR UNKNOWN INDICATION
     Route: 048
  7. SPIRONOLACTONE [Concomitant]
     Indication: PRODUCT USED FOR UNKNOWN INDICATION
     Route: 048
  8. LOXOPROFEN SODIUM HYDRATE [Concomitant]
     Indication: CROHN'S DISEASE
     Route: 048
  9. DIMETHICONE [Concomitant]
     Indication: CROHN'S DISEASE
     Dosage: 40 MG DAILY
     Route: 048
  10. TIZANIDINE HYDROCHLORIDE [Concomitant]
     Indication: PRODUCT USED FOR UNKNOWN INDICATION
     Route: 048
  11. HUMIRA [Suspect]
     Indication: CROHN'S DISEASE
     Route: 058
     Dates: start: 20101101, end: 20101101
  12. ANTIBIOTICS-RESISTANT LACTIC ACID BACTERIAE [Concomitant]
     Indication: CROHN'S DISEASE
     Dosage: 3 GRAMS DAILY
     Route: 048
  13. DAIKENTYUTO [Concomitant]
     Indication: CROHN'S DISEASE
     Dosage: 15 GRAMS DAILY
     Route: 048
  14. HUMIRA [Suspect]
     Dates: start: 20101115, end: 20101115
  15. WARFARIN SODIUM [Concomitant]
     Indication: PRODUCT USED FOR UNKNOWN INDICATION
     Route: 048
  16. ZOLPIDEM TARTRATE [Concomitant]
     Indication: PRODUCT USED FOR UNKNOWN INDICATION
     Route: 048
  17. FUROSEMIDE [Concomitant]
     Indication: PRODUCT USED FOR UNKNOWN INDICATION
     Route: 048

REACTIONS (2)
  - PYREXIA [None]
  - DEVICE RELATED INFECTION [None]
